FAERS Safety Report 8085184-9 (Version None)
Quarter: 2012Q1

REPORT INFORMATION
  Report Type: 
  Country: None (occurrence: None)
  Receive Date: 20120128
  Receipt Date: 20110319
  Transmission Date: 20120608
  Serious: No
  Sender: FDA-Public Use
  Company Number: US-ABBOTT-11P-163-0713200-00

PATIENT
  Age: 47 Year
  Sex: Female

DRUGS (7)
  1. HUMIRA [Suspect]
     Indication: PSORIATIC ARTHROPATHY
     Dates: start: 20110315
  2. ZOLOFT [Concomitant]
     Indication: PREMENSTRUAL SYNDROME
  3. NASONEX [Concomitant]
     Indication: SEASONAL ALLERGY
     Dosage: 2 SPRAYS EACH NOSTRIL
  4. ALLEGRA [Concomitant]
     Indication: HYPERSENSITIVITY
  5. KLONOPIN [Concomitant]
     Indication: ANXIETY
  6. ADDERALL 5 [Concomitant]
     Indication: ATTENTION DEFICIT/HYPERACTIVITY DISORDER
     Dosage: DURING WEEK
  7. PATADAY [Concomitant]
     Indication: EYE ALLERGY
     Dosage: EACH EYE

REACTIONS (1)
  - SWEAT GLAND DISORDER [None]
